FAERS Safety Report 4678350-3 (Version None)
Quarter: 2005Q2

REPORT INFORMATION
  Report Type: 
  Country: None (occurrence: None)
  Receive Date: 20050527
  Receipt Date: 20050520
  Transmission Date: 20051028
  Serious: Yes (Death, Hospitalization)
  Sender: FDA-Public Use
  Company Number: 2005017316

PATIENT
  Age: 75 Year
  Sex: Male
  Weight: 80 kg

DRUGS (8)
  1. LYRICA [Suspect]
     Indication: NEUROPATHIC PAIN
     Dosage: 150 MG (1 IN 1 D), ORAL
     Route: 048
     Dates: start: 20041127
  2. ASPIRIN [Concomitant]
  3. SALUTEC (HYDROCHLOROTHIAZIDE, RAMIPRIL) [Concomitant]
  4. TORSEMIDE [Concomitant]
  5. SPIRONOLACTONE [Concomitant]
  6. CITALOPRAM [Concomitant]
  7. DUROGESIC 25 (FENTANYL) [Concomitant]
  8. PROCHLORPERAZINE MALEATE [Concomitant]

REACTIONS (7)
  - DISTURBANCE IN ATTENTION [None]
  - GENERAL PHYSICAL HEALTH DETERIORATION [None]
  - LEFT VENTRICULAR FAILURE [None]
  - RESPIRATORY FAILURE [None]
  - SLEEP ATTACKS [None]
  - SOMNOLENCE [None]
  - TREMOR [None]
